FAERS Safety Report 4432407-0 (Version None)
Quarter: 2004Q3

REPORT INFORMATION
  Report Type: 
  Country: None (occurrence: None)
  Receive Date: 20040825
  Receipt Date: 20040813
  Transmission Date: 20050211
  Serious: Yes (Hospitalization)
  Sender: FDA-Public Use
  Company Number: FR-GLAXOSMITHKLINE-B0342415A

PATIENT
  Age: 3 Year
  Sex: Male

DRUGS (3)
  1. RETROVIR [Suspect]
     Indication: ANTIVIRAL PROPHYLAXIS
     Route: 048
     Dates: start: 20010301, end: 20010101
  2. COMBIVIR [Suspect]
     Indication: HIV INFECTION
     Dates: start: 20010101, end: 20010308
  3. VIRACEPT [Suspect]
     Indication: HIV INFECTION
     Dates: start: 20010101, end: 20010308

REACTIONS (6)
  - ABNORMAL BEHAVIOUR [None]
  - AGITATION [None]
  - DRUG EXPOSURE DURING PREGNANCY [None]
  - GLUCOSE-6-PHOSPHATE DEHYDROGENASE DEFICIENCY [None]
  - HYPERLACTACIDAEMIA [None]
  - SPEECH DISORDER [None]
